FAERS Safety Report 14305532 (Version 2)
Quarter: 2018Q1

REPORT INFORMATION
  Report Type: Spontaneous
  Country: AT (occurrence: AT)
  Receive Date: 20171219
  Receipt Date: 20180126
  Transmission Date: 20180509
  Serious: Yes (Hospitalization)
  Sender: FDA-Public Use
  Company Number: AT-OTSUKA-15644073

PATIENT
  Age: 30 Year
  Sex: Male

DRUGS (3)
  1. ABILIFY [Suspect]
     Active Substance: ARIPIPRAZOLE
     Indication: BIPOLAR DISORDER
     Dosage: RESTARTED WITH 10MG TWICE DAILY:THEN DOSAGE WAS DECREASED TO 10MG ONCE DAILY.
     Route: 048
  2. ABILIFY [Suspect]
     Active Substance: ARIPIPRAZOLE
     Indication: MANIA
  3. LITHIUM. [Suspect]
     Active Substance: LITHIUM
     Indication: BIPOLAR DISORDER
     Dosage: 450 MG, BID
     Route: 065

REACTIONS (2)
  - Treatment noncompliance [Unknown]
  - Mania [Recovered/Resolved]
